FAERS Safety Report 5348117-1 (Version None)
Quarter: 2007Q2

REPORT INFORMATION
  Report Type: 
  Country: None (occurrence: None)
  Receive Date: 20070606
  Receipt Date: 20070524
  Transmission Date: 20071010
  Serious: Yes (Life-Threatening, Hospitalization, Other)
  Sender: FDA-Public Use
  Company Number: FR-ABBOTT-01P-163-0108084-00

PATIENT
  Sex: Female
  Weight: 1.16 kg

DRUGS (12)
  1. NORVIR [Suspect]
     Indication: DRUG EXPOSURE DURING PREGNANCY
  2. ZIDOVUDINE [Suspect]
     Indication: DRUG EXPOSURE DURING PREGNANCY
  3. ZIDOVUDINE [Suspect]
     Indication: PROPHYLAXIS AGAINST HIV INFECTION
     Route: 042
  4. ZIDOVUDINE [Suspect]
     Route: 042
     Dates: start: 19990702, end: 19990705
  5. ZIDOVUDINE [Suspect]
     Route: 042
     Dates: start: 19990705, end: 19990710
  6. ZIDOVUDINE [Suspect]
     Route: 042
     Dates: start: 19990710, end: 19990810
  7. ZIDOVUDINE [Suspect]
     Route: 048
     Dates: start: 19990707, end: 19990718
  8. SAQUINAVIR [Suspect]
     Indication: DRUG EXPOSURE DURING PREGNANCY
  9. STAVUDINE [Suspect]
     Indication: DRUG EXPOSURE DURING PREGNANCY
  10. DIDANOSINE [Suspect]
     Indication: DRUG EXPOSURE DURING PREGNANCY
  11. BACTRIM [Suspect]
     Indication: DRUG EXPOSURE DURING PREGNANCY
  12. NICARDIPINE HYDROCHLORIDE [Suspect]
     Indication: DRUG EXPOSURE DURING PREGNANCY

REACTIONS (9)
  - ALANINE AMINOTRANSFERASE INCREASED [None]
  - BLOOD CREATININE INCREASED [None]
  - DRUG EXPOSURE DURING PREGNANCY [None]
  - ENTEROCOLITIS [None]
  - EXPRESSIVE LANGUAGE DISORDER [None]
  - GAIT DISTURBANCE [None]
  - NECROSIS [None]
  - PREMATURE BABY [None]
  - THROMBOCYTHAEMIA [None]
